FAERS Safety Report 11749318 (Version 8)
Quarter: 2017Q4

REPORT INFORMATION
  Report Type: Report from Study
  Country: CA (occurrence: CA)
  Receive Date: 20151118
  Receipt Date: 20171222
  Transmission Date: 20180320
  Serious: Yes (Death, Hospitalization, Other)
  Sender: FDA-Public Use
  Company Number: PHHY2015CA100669

PATIENT
  Age: 66 Year
  Sex: Female

DRUGS (2)
  1. SANDOSTATIN LAR DEPOT [Suspect]
     Active Substance: OCTREOTIDE ACETATE
     Indication: CARCINOID TUMOUR
     Dosage: 20 MG, QMO (EVERY 4 WEEKS)
     Route: 030
     Dates: start: 20150716, end: 20161110
  2. SANDOSTATIN LAR DEPOT [Suspect]
     Active Substance: OCTREOTIDE ACETATE
     Dosage: 20 MG, QMO (EVERY 4 WEEKS)
     Route: 030
     Dates: start: 20161208, end: 20171122

REACTIONS (17)
  - Confusional state [Unknown]
  - Diarrhoea [Recovering/Resolving]
  - Death [Fatal]
  - Blood pressure systolic increased [Unknown]
  - Blood pressure diastolic increased [Unknown]
  - Fall [Unknown]
  - Pain [Unknown]
  - Spinal fracture [Unknown]
  - Aggression [Unknown]
  - Eating disorder [Unknown]
  - Mental disorder [Unknown]
  - Phlebitis [Unknown]
  - Pain in extremity [Unknown]
  - Lung disorder [Unknown]
  - Coeliac disease [Unknown]
  - General physical health deterioration [Unknown]
  - Respiratory rate increased [Recovering/Resolving]

NARRATIVE: CASE EVENT DATE: 20150817
